FAERS Safety Report 24934479 (Version 2)
Quarter: 2025Q2

REPORT INFORMATION
  Report Type: Spontaneous
  Country: CH (occurrence: CH)
  Receive Date: 20250206
  Receipt Date: 20250502
  Transmission Date: 20250716
  Serious: Yes (Other)
  Sender: CSL BEHRING
  Company Number: CH-BEH-2025194284

PATIENT
  Age: 67 Year
  Sex: Male
  Weight: 89 kg

DRUGS (9)
  1. PRIVIGEN [Suspect]
     Active Substance: HUMAN IMMUNOGLOBULIN G
     Indication: Guillain-Barre syndrome
     Dosage: 20 G (INFUSION RATE 157.25ML/H)
     Route: 042
     Dates: start: 20240806, end: 20240806
  2. PRIVIGEN [Suspect]
     Active Substance: HUMAN IMMUNOGLOBULIN G
     Indication: Chronic inflammatory demyelinating polyradiculoneuropathy
     Dosage: 20 G (INFUSION RATE 114ML/H)
     Route: 042
     Dates: start: 20240807, end: 20240807
  3. PRIVIGEN [Suspect]
     Active Substance: HUMAN IMMUNOGLOBULIN G
     Dosage: 20 G (INFUSION RATE 119ML/H)
     Route: 042
     Dates: start: 20240808
  4. PRIVIGEN [Suspect]
     Active Substance: HUMAN IMMUNOGLOBULIN G
     Dosage: 20 G
     Route: 042
     Dates: start: 20240809
  5. AMOXICILLIN [Concomitant]
     Active Substance: AMOXICILLIN
     Indication: Listeriosis
     Route: 042
     Dates: start: 20240805, end: 20240809
  6. THIAMINE [Concomitant]
     Active Substance: THIAMINE
     Indication: Alcohol detoxification
     Route: 042
     Dates: start: 20240805
  7. NIFEDIPINE [Concomitant]
     Active Substance: NIFEDIPINE
     Indication: Hypertension
     Route: 042
     Dates: start: 20240806
  8. DEXMEDETOMIDINE [Concomitant]
     Active Substance: DEXMEDETOMIDINE
     Indication: Agitation
     Route: 065
     Dates: start: 20240808, end: 20240809
  9. DEXMEDETOMIDINE [Concomitant]
     Active Substance: DEXMEDETOMIDINE
     Indication: Delirium

REACTIONS (3)
  - Nephropathy [Recovered/Resolved]
  - Acute kidney injury [Recovered/Resolved]
  - Renal tubular necrosis [Recovered/Resolved]
